FAERS Safety Report 7525257-X (Version None)
Quarter: 2011Q2

REPORT INFORMATION
  Report Type: 
  Country: None (occurrence: None)
  Receive Date: 20110602
  Receipt Date: 20110602
  Transmission Date: 20111010
  Serious: Yes (Other)
  Sender: FDA-Public Use
  Company Number: None

PATIENT
  Sex: Male
  Weight: 84.369 kg

DRUGS (1)
  1. HUMIRA [Suspect]
     Indication: PSORIATIC ARTHROPATHY
     Dosage: 40 MG EOW SQ
     Route: 058
     Dates: start: 20091001, end: 20110501

REACTIONS (4)
  - ARTHRALGIA [None]
  - SYNOVIAL FLUID ANALYSIS ABNORMAL [None]
  - CANDIDA TEST POSITIVE [None]
  - JOINT SWELLING [None]
